FAERS Safety Report 4914923-8 (Version None)
Quarter: 2006Q1

REPORT INFORMATION
  Report Type: 
  Country: None (occurrence: None)
  Receive Date: 20060215
  Receipt Date: 20060215
  Transmission Date: 20060701
  Serious: Yes (Hospitalization)
  Sender: FDA-Public Use
  Company Number: None

PATIENT
  Sex: Male
  Weight: 10.4327 kg

DRUGS (1)
  1. AUGMENTIN '125' [Suspect]
     Indication: OTITIS MEDIA
     Dosage: PO [PRIOR TO ADMISSION]
     Route: 048

REACTIONS (2)
  - PRURITUS [None]
  - RASH GENERALISED [None]
